FAERS Safety Report 6135533-3 (Version None)
Quarter: 2009Q1

REPORT INFORMATION
  Report Type: 
  Country: None (occurrence: None)
  Receive Date: 20090327
  Receipt Date: 20090320
  Transmission Date: 20090719
  Serious: Yes (Other)
  Sender: FDA-Public Use
  Company Number: B0566800A

PATIENT
  Sex: Male

DRUGS (11)
  1. TELZIR [Suspect]
     Indication: HIV INFECTION
     Route: 048
     Dates: start: 20051015, end: 20060424
  2. KIVEXA [Suspect]
     Indication: HIV INFECTION
     Route: 048
  3. ZIAGEN [Suspect]
     Indication: HIV INFECTION
     Route: 048
  4. NORVIR [Suspect]
     Indication: HIV INFECTION
     Route: 048
  5. EMTRIVA [Suspect]
     Indication: HIV INFECTION
     Route: 065
  6. FUZEON [Suspect]
     Indication: HIV INFECTION
     Route: 048
  7. VIREAD [Suspect]
     Indication: HIV INFECTION
     Route: 048
  8. TIPRANAVIR [Suspect]
     Indication: HIV INFECTION
     Route: 065
  9. TRUVADA [Suspect]
     Indication: HIV INFECTION
     Route: 065
  10. INTELENCE [Suspect]
     Indication: HIV INFECTION
     Route: 065
  11. PREZISTA [Suspect]
     Indication: HIV INFECTION
     Route: 065

REACTIONS (2)
  - DRUG RASH WITH EOSINOPHILIA AND SYSTEMIC SYMPTOMS [None]
  - DRUG RESISTANCE [None]
